FAERS Safety Report 5677898-2 (Version None)
Quarter: 2008Q1

REPORT INFORMATION
  Report Type: 
  Country: None (occurrence: None)
  Receive Date: 20080319
  Receipt Date: 20080305
  Transmission Date: 20080703
  Serious: Yes (Other)
  Sender: FDA-Public Use
  Company Number: OPER20080040

PATIENT
  Age: 57 Year
  Sex: Female
  Weight: 76.2043 kg

DRUGS (3)
  1. OPANA ER [Suspect]
     Indication: BACK PAIN
     Dosage: 40 MG, 1 TAB BID, PER ORAL
     Route: 048
     Dates: start: 20080224, end: 20080303
  2. OXYCODONE HCL [Concomitant]
  3. CELEBREX [Concomitant]

REACTIONS (5)
  - HEADACHE [None]
  - INCORRECT DOSE ADMINISTERED [None]
  - INTENTIONAL DRUG MISUSE [None]
  - NAUSEA [None]
  - STOMACH DISCOMFORT [None]
